FAERS Safety Report 15683266 (Version 1)
Quarter: 2018Q4

REPORT INFORMATION
  Report Type: Spontaneous
  Country: DK (occurrence: DK)
  Receive Date: 20181204
  Receipt Date: 20181204
  Transmission Date: 20190205
  Serious: Yes (Death, Other)
  Sender: FDA-Public Use
  Company Number: DK-AUROBINDO-AUR-APL-2018-058252

PATIENT
  Age: 54 Year
  Sex: Female

DRUGS (5)
  1. ONDANSETRON [Suspect]
     Active Substance: ONDANSETRON
     Indication: PRODUCT USED FOR UNKNOWN INDICATION
     Dosage: UNK,DOSIS: UNKNOWN. STRENGTH: UNKNOWN.
     Route: 065
  2. MORFIN                             /00036303/ [Concomitant]
     Active Substance: MORPHINE HYDROCHLORIDE
     Indication: PAIN
     Dosage: 10 MILLIGRAM,DOSAGE: 10 MG. STRENGTH: UNKNOWN.
     Route: 065
  3. CIFIN [Suspect]
     Active Substance: CIPROFLOXACIN HYDROCHLORIDE
     Indication: NAUSEA
     Dosage: UNK,DOSAGE: UNKNOWN, STRENGTH: 500 MG.
     Route: 048
     Dates: start: 20180902
  4. METOCLOPRAMIDE HYDROCHLORIDE. [Suspect]
     Active Substance: METOCLOPRAMIDE HYDROCHLORIDE
     Indication: PRODUCT USED FOR UNKNOWN INDICATION
     Dosage: UNK,DOSAGE: UNKNOWN. STRENGTH: UNKNOWN.
     Route: 065
  5. MALFIN [Concomitant]
     Active Substance: MORPHINE SULFATE
     Indication: PAIN
     Dosage: UNK,STRENGTH: 10 MG
     Route: 048

REACTIONS (2)
  - Gastric haemorrhage [Fatal]
  - Electrocardiogram QT prolonged [Fatal]

NARRATIVE: CASE EVENT DATE: 20180903
